FAERS Safety Report 6770042-X (Version None)
Quarter: 2010Q2

REPORT INFORMATION
  Report Type: 
  Country: None (occurrence: None)
  Receive Date: 20100520
  Receipt Date: 20091103
  Transmission Date: 20101027
  Serious: Yes (Other)
  Sender: FDA-Public Use
  Company Number: 2009293769

PATIENT
  Age: 57 Year
  Sex: Female

DRUGS (6)
  1. PROVERA [Suspect]
     Indication: HORMONE REPLACEMENT THERAPY
     Dosage: ORAL; 2.5 MG
     Route: 048
     Dates: end: 19970101
  2. PROVERA [Suspect]
     Indication: HORMONE REPLACEMENT THERAPY
     Dosage: ORAL; 2.5 MG
     Route: 048
     Dates: start: 20000201, end: 20000701
  3. PREMARIN [Suspect]
     Indication: HORMONE REPLACEMENT THERAPY
     Dosage: 1.25 MG
     Dates: end: 19970101
  4. PREMARIN [Suspect]
     Indication: HORMONE REPLACEMENT THERAPY
     Dosage: 1.25 MG
     Dates: start: 20000201, end: 20000701
  5. PREMPRO [Suspect]
     Indication: HORMONE REPLACEMENT THERAPY
     Dosage: 0.625/2.5 MG
     Dates: start: 19970101, end: 20020101
  6. FEMHRT [Suspect]
     Indication: HORMONE REPLACEMENT THERAPY
     Dosage: 1MG/5MCG
     Dates: start: 20020901, end: 20030101

REACTIONS (2)
  - BREAST CANCER FEMALE [None]
  - CEREBROVASCULAR ACCIDENT [None]
